FAERS Safety Report 8338383-2 (Version None)
Quarter: 2012Q2

REPORT INFORMATION
  Report Type: 
  Country: None (occurrence: None)
  Receive Date: 20120504
  Receipt Date: 20120424
  Transmission Date: 20120825
  Serious: Yes (Hospitalization)
  Sender: FDA-Public Use
  Company Number: US-JNJFOC-20120405544

PATIENT
  Sex: Female
  Weight: 49.8 kg

DRUGS (5)
  1. REMICADE [Suspect]
     Indication: INFLAMMATORY BOWEL DISEASE
     Route: 042
     Dates: start: 20090804, end: 20091022
  2. SACCHAROMYCES BOULARDII [Concomitant]
  3. LOPERAMIDE [Concomitant]
  4. FOLIC ACID [Concomitant]
  5. CITALOPRAM HYDROBROMIDE [Concomitant]

REACTIONS (1)
  - ILEOSTOMY CLOSURE [None]
